FAERS Safety Report 6905746-9 (Version None)
Quarter: 2010Q3

REPORT INFORMATION
  Report Type: 
  Country: None (occurrence: None)
  Receive Date: 20100730
  Receipt Date: 20100715
  Transmission Date: 20110219
  Serious: Yes (Hospitalization)
  Sender: FDA-Public Use
  Company Number: 2010002828

PATIENT
  Age: 48 Year
  Sex: Male

DRUGS (4)
  1. ERLOTINIB HYDROCHLORIDE [Suspect]
     Indication: SARCOMA
     Dosage: (150 MG, QD), ORAL
     Route: 048
     Dates: start: 20100517, end: 20100701
  2. AZACITIDINE [Suspect]
     Indication: SARCOMA
     Dosage: (220 MG, 220 MG/100 MG), SUBCUTANEOUS
     Route: 058
     Dates: start: 20100517, end: 20100617
  3. NEUPOGEN [Concomitant]
  4. ZOFRAN [Concomitant]

REACTIONS (11)
  - BLOOD ALBUMIN DECREASED [None]
  - DIVERTICULITIS [None]
  - ESCHERICHIA BACTERAEMIA [None]
  - HAEMOGLOBIN DECREASED [None]
  - LYMPHOCYTE COUNT DECREASED [None]
  - NAUSEA [None]
  - NEUTROPHIL COUNT DECREASED [None]
  - PAIN [None]
  - PLEURAL EFFUSION [None]
  - VOMITING [None]
  - WHITE BLOOD CELL COUNT DECREASED [None]
